FAERS Safety Report 8800459 (Version 1)
Quarter: 2012Q4

REPORT INFORMATION
  Report Type: 
  Country: US (occurrence: US)
  Receive Date: 20120921
  Receipt Date: 20120921
  Transmission Date: 20130627
  Serious: Yes (Death)
  Sender: FDA-Public Use
  Company Number: US-ROCHE-1124804

PATIENT
  Sex: Male

DRUGS (3)
  1. AVASTIN [Suspect]
     Indication: BENIGN HEPATIC NEOPLASM
     Route: 065
  2. AVASTIN [Suspect]
     Indication: BENIGN BILIARY NEOPLASM
  3. AVASTIN [Suspect]
     Indication: BENIGN BILIARY NEOPLASM

REACTIONS (1)
  - Death [Fatal]
